FAERS Safety Report 8844257 (Version 3)
Quarter: 2012Q4

REPORT INFORMATION
  Report Type: 
  Country: FR (occurrence: FR)
  Receive Date: 20121017
  Receipt Date: 20121019
  Transmission Date: 20130627
  Serious: Yes (Death, Hospitalization)
  Sender: FDA-Public Use
  Company Number: FR-BAYER-2012-106629

PATIENT
  Age: 76 Year
  Sex: Female

DRUGS (28)
  1. CIFLOX [Suspect]
     Indication: FEBRILE INFECTION
     Dosage: UNK
     Dates: start: 20120520, end: 20120530
  2. TIENAM [Suspect]
     Indication: FEBRILE INFECTION
     Dosage: UNK
     Dates: start: 20120520, end: 20120530
  3. TIENAM [Suspect]
     Indication: SEPSIS
     Dosage: UNK
     Dates: start: 20120709, end: 20120719
  4. OFLOCET [Suspect]
     Indication: FEBRILE INFECTION
     Dosage: UNK
     Dates: start: 20120530, end: 20120605
  5. VANCOMYCIN [Suspect]
     Indication: FEBRILE INFECTION
     Dosage: UNK
     Dates: start: 20120503, end: 20120525
  6. VANCOMYCIN [Suspect]
     Indication: SEPSIS
     Dosage: UNK
     Dates: start: 20120615
  7. ROCEPHINE [Suspect]
     Indication: FEBRILE INFECTION
     Dosage: UNK
     Dates: start: 20120530
  8. GENTAMICINE [Suspect]
     Indication: SEPSIS
     Dosage: UNK
     Dates: start: 20120615
  9. GENTAMICINE [Suspect]
     Indication: SEPSIS
     Dosage: UNK
     Dates: start: 20120709, end: 20120719
  10. DERMATOLOGICALS [Concomitant]
     Indication: RASH PRURITIC
     Dosage: UNK
  11. XYZALL [Concomitant]
     Indication: RASH PRURITIC
  12. ATARAX [Concomitant]
     Indication: RASH PRURITIC
  13. ATARAX [Concomitant]
     Indication: RASH PRURITIC
     Dosage: 25 mg, QD
     Dates: start: 20120802
  14. DERMOVAL [CLOBETASOL PROPIONATE] [Concomitant]
     Indication: ERYTHEMA
     Dosage: 3 tubes per dayUNK
  15. TARGOCID [Concomitant]
     Indication: CULTURE URINE POSITIVE
     Dosage: UNK
     Dates: start: 20120731
  16. PLAVIX [Concomitant]
     Dosage: Daily dose 75 mg
     Dates: start: 20120802
  17. KARDEGIC [Concomitant]
     Dosage: Daily dose 75 mg
     Dates: start: 20120802
  18. TAHOR [Concomitant]
     Dosage: Daily dose 10 mg
     Dates: start: 20120802
  19. BISOPROLOL [Concomitant]
     Dosage: Daily dose 5 mg
     Dates: start: 20120802
  20. NEO MERCAZOLE [Concomitant]
     Dosage: 5 mg, TID
     Dates: start: 20120802
  21. CETIRIZINE [Concomitant]
     Dosage: Daily dose 10 mg
     Dates: start: 20120802
  22. OSTRAM-VIT.D3 [Concomitant]
     Dosage: 1 DF, QD
     Dates: start: 20120802
  23. CALCIPARINE [Concomitant]
     Dosage: 0.2 ml, BID
     Dates: start: 20120802
  24. INEXIUM [Concomitant]
     Dosage: 20 mg, QD
     Dates: start: 20120802
  25. RENAGEL [SEVELAMER HYDROCHLORIDE] [Concomitant]
     Dosage: 800 mg, QD
     Dates: start: 20120802
  26. KAYEXALATE [Concomitant]
     Dosage: 1 measuring spoon per day
     Dates: start: 20120802
  27. NOVOMIX [INSULIN ASPART] [Concomitant]
     Dosage: 6 u, QD
     Dates: start: 20120802
  28. MORPHINE [Concomitant]
     Dosage: 5 mg, TID
     Dates: start: 20120802

REACTIONS (1)
  - Drug reaction with eosinophilia and systemic symptoms [Fatal]
